FAERS Safety Report 10479468 (Version 1)
Quarter: 2014Q3

REPORT INFORMATION
  Report Type: Spontaneous
  Country: GB (occurrence: GB)
  Receive Date: 20140926
  Receipt Date: 20140926
  Transmission Date: 20150326
  Serious: Yes (Life-Threatening, Other)
  Sender: FDA-Public Use
  Company Number: GB-ABBVIE-14P-167-1289132-00

PATIENT
  Age: 38 Year
  Sex: Female

DRUGS (2)
  1. DEPAKOTE [Suspect]
     Active Substance: DIVALPROEX SODIUM
     Indication: AFFECTIVE DISORDER
     Route: 048
     Dates: start: 20140827, end: 20140902
  2. DIAZEPAM. [Concomitant]
     Active Substance: DIAZEPAM
     Indication: PRODUCT USED FOR UNKNOWN INDICATION

REACTIONS (5)
  - Condition aggravated [Unknown]
  - Depressed mood [Recovering/Resolving]
  - Suicidal ideation [Recovering/Resolving]
  - Tearfulness [Recovering/Resolving]
  - Anger [Recovering/Resolving]

NARRATIVE: CASE EVENT DATE: 20140828
